FAERS Safety Report 10897924 (Version 2)
Quarter: 2015Q2

REPORT INFORMATION
  Report Type: Spontaneous
  Country: JP (occurrence: JP)
  Receive Date: 20150309
  Receipt Date: 20150422
  Transmission Date: 20150821
  Serious: Yes (Hospitalization)
  Sender: FDA-Public Use
  Company Number: JP-009507513-1503JPN000936

PATIENT
  Age: 50 Year
  Sex: Male

DRUGS (1)
  1. TIENAM FOR INTRAMUSCULAR INJECTION [Suspect]
     Active Substance: CILASTATIN SODIUM\IMIPENEM
     Dosage: DAILY DOSAGE UNKNOWN
     Route: 030
     Dates: start: 201501, end: 2015

REACTIONS (2)
  - Generalised erythema [Recovered/Resolved]
  - Anaphylactic reaction [Recovered/Resolved]

NARRATIVE: CASE EVENT DATE: 201501
